FAERS Safety Report 6551010-X (Version None)
Quarter: 2010Q1

REPORT INFORMATION
  Report Type: 
  Country: None (occurrence: None)
  Receive Date: 20100122
  Receipt Date: 20100122
  Transmission Date: 20100710
  Serious: No
  Sender: FDA-Public Use
  Company Number: None

PATIENT
  Age: 68 Year
  Sex: Male
  Weight: 86.2 kg

DRUGS (1)
  1. WARFARIN SODIUM [Suspect]
     Indication: DEEP VEIN THROMBOSIS
     Dosage: 2.5 MG OTHER PO
     Route: 048
     Dates: start: 20090429, end: 20091027

REACTIONS (5)
  - DRUG TOXICITY [None]
  - FULL BLOOD COUNT ABNORMAL [None]
  - INTERNATIONAL NORMALISED RATIO INCREASED [None]
  - URINE ANALYSIS ABNORMAL [None]
  - VERTIGO [None]
